FAERS Safety Report 16052476 (Version 2)
Quarter: 2019Q1

REPORT INFORMATION
  Report Type: Spontaneous
  Country: ES (occurrence: ES)
  Receive Date: 20190308
  Receipt Date: 20190328
  Transmission Date: 20190418
  Serious: Yes (Death)
  Sender: FDA-Public Use
  Company Number: ES-ACTELION-A-CH2019-187189

PATIENT

DRUGS (1)
  1. ZAVESCA [Suspect]
     Active Substance: MIGLUSTAT
     Indication: NIEMANN-PICK DISEASE
     Route: 048

REACTIONS (8)
  - Pneumonia [Fatal]
  - Respiratory tract infection [Fatal]
  - Apallic syndrome [Fatal]
  - Niemann-Pick disease [Unknown]
  - Pneumonia aspiration [Fatal]
  - Acid base balance abnormal [Fatal]
  - Sepsis [Fatal]
  - Disease progression [Unknown]
